FAERS Safety Report 7720769-8 (Version None)
Quarter: 2011Q3

REPORT INFORMATION
  Report Type: 
  Country: None (occurrence: None)
  Receive Date: 20110831
  Receipt Date: 20110823
  Transmission Date: 20111222
  Serious: Yes (Hospitalization, Disabling)
  Sender: FDA-Public Use
  Company Number: DE-ASTELLAS-2011EU005641

PATIENT
  Sex: Male
  Weight: 101 kg

DRUGS (2)
  1. PROGRAF [Suspect]
     Dosage: 3 MG, BID
     Route: 048
     Dates: start: 20110812
  2. MYFORTIC [Suspect]
     Dosage: 720 MG, BID
     Route: 048

REACTIONS (2)
  - POST PROCEDURAL HAEMORRHAGE [None]
  - COMPLICATIONS OF TRANSPLANTED KIDNEY [None]
